FAERS Safety Report 8826670 (Version 2)
Quarter: 2013Q2

REPORT INFORMATION
  Report Type: Report from Study
  Country: PL (occurrence: PL)
  Receive Date: 20121005
  Receipt Date: 20130410
  Transmission Date: 20140414
  Serious: Yes (Congenital Anomaly)
  Sender: FDA-Public Use
  Company Number: PHHY2012PL086517

PATIENT
  Sex: 0

DRUGS (3)
  1. TEGRETOL [Suspect]
     Indication: EPILEPSY
     Dosage: 800 MG, DAILY
  2. VALPROIC ACID [Suspect]
     Indication: EPILEPSY
  3. LAMOTRIGINE [Suspect]
     Indication: EPILEPSY
     Route: 064

REACTIONS (2)
  - Spina bifida [Unknown]
  - Foetal exposure during pregnancy [Unknown]
